FAERS Safety Report 7973471-1 (Version None)
Quarter: 2011Q4

REPORT INFORMATION
  Report Type: 
  Country: None (occurrence: None)
  Receive Date: 20111213
  Receipt Date: 20111130
  Transmission Date: 20120403
  Serious: Yes (Hospitalization)
  Sender: FDA-Public Use
  Company Number: FR-AMGEN-FRASP2011063241

PATIENT
  Age: 70 Year
  Sex: Female

DRUGS (5)
  1. DOXORUBICIN HYDROCHLORIDE [Concomitant]
  2. ATORVASTATIN CALCIUM [Concomitant]
  3. ARANESP [Suspect]
     Indication: ANAEMIA
     Dosage: 500 MUG, UNK
     Route: 058
     Dates: start: 20110925, end: 20111016
  4. INNOHEP [Concomitant]
  5. FERROUS FUMARATE [Concomitant]
     Dosage: UNK MUG, UNK

REACTIONS (5)
  - RETROPERITONEAL OEDEMA [None]
  - OEDEMA PERIPHERAL [None]
  - PAIN [None]
  - PERINEAL INDURATION [None]
  - ERYTHEMA [None]
